FAERS Safety Report 15856447 (Version 1)
Quarter: 2019Q1

REPORT INFORMATION
  Report Type: Report from Study
  Country: US (occurrence: US)
  Receive Date: 20190123
  Receipt Date: 20190123
  Transmission Date: 20190417
  Serious: Yes (Life-Threatening, Other)
  Sender: FDA-Public Use
  Company Number: US-BION-007748

PATIENT
  Age: 17 Year

DRUGS (1)
  1. LOPERAMIDE HYDROCHLORIDE. [Suspect]
     Active Substance: LOPERAMIDE HYDROCHLORIDE
     Dosage: MEDIAN DAILY DOSAGE WAS 250 MG, RANGING FROM 70 MG TO 1600 MG

REACTIONS (2)
  - Drug abuse [Unknown]
  - Electrocardiogram QT prolonged [Unknown]
